FAERS Safety Report 8552200 (Version 2)
Quarter: 2012Q4

REPORT INFORMATION
  Report Type: 
  Country: DE (occurrence: DE)
  Receive Date: 20120508
  Receipt Date: 20120830
  Transmission Date: 20130627
  Serious: Yes (Other)
  Sender: FDA-Public Use
  Company Number: DE-GLAXOSMITHKLINE-D0075472A

PATIENT
  Sex: Female

DRUGS (4)
  1. EZOGABINE [Suspect]
     Indication: EPILEPSY
     Dosage: 300MG Three times per day
     Route: 048
     Dates: start: 201111, end: 201204
  2. ERGENYL [Concomitant]
     Indication: EPILEPSY
     Dosage: 2500MG per day
     Route: 065
  3. BISOPROLOL [Concomitant]
     Indication: HYPERTENSION
     Dosage: 10MG per day
     Route: 065
  4. OLMESARTAN [Concomitant]
     Indication: HYPERTENSION
     Dosage: 30MG per day
     Route: 065

REACTIONS (3)
  - Cellulitis [Recovering/Resolving]
  - Erysipelas [Recovering/Resolving]
  - Venous insufficiency [Recovering/Resolving]
